FAERS Safety Report 7305235-6 (Version None)
Quarter: 2011Q1

REPORT INFORMATION
  Report Type: 
  Country: None (occurrence: None)
  Receive Date: 20110222
  Receipt Date: 20110217
  Transmission Date: 20110831
  Serious: Yes (Other)
  Sender: FDA-Public Use
  Company Number: US-PFIZER INC-2010035317

PATIENT
  Sex: Male

DRUGS (1)
  1. ZOLOFT [Suspect]
     Dosage: UNK
     Route: 048

REACTIONS (6)
  - DEPRESSION [None]
  - SUICIDAL IDEATION [None]
  - HOMICIDAL IDEATION [None]
  - WITHDRAWAL SYNDROME [None]
  - DISSOCIATION [None]
  - MEMORY IMPAIRMENT [None]
